FAERS Safety Report 9882165 (Version 1)
Quarter: 2014Q1

REPORT INFORMATION
  Report Type: Spontaneous
  Country: DK (occurrence: DK)
  Receive Date: 20140207
  Receipt Date: 20140207
  Transmission Date: 20141002
  Serious: Yes (Other)
  Sender: FDA-Public Use
  Company Number: DK-WATSON-2014-01640

PATIENT
  Age: 67 Year
  Sex: Male

DRUGS (4)
  1. AMLODIPIN ACTAVIS [Suspect]
     Indication: HYPERTENSION
     Dosage: UNK; STYRKE: 5 MG(STRENGTH: 5 MG)
     Route: 048
     Dates: start: 20130428
  2. TRANDATE [Suspect]
     Indication: HYPERTENSION
     Dosage: UNK
     Route: 042
     Dates: start: 20130428
  3. PRIMPERAN [Suspect]
     Indication: NAUSEA
     Dosage: UNK
     Route: 065
     Dates: start: 20130428
  4. HJERTEMAGNYL /00228701/ [Suspect]
     Indication: CEREBROVASCULAR ACCIDENT
     Dosage: 300 MG, DAILY
     Route: 065
     Dates: start: 20130428

REACTIONS (3)
  - Sudden hearing loss [Not Recovered/Not Resolved]
  - Visual field defect [Unknown]
  - Tinnitus [Unknown]
